FAERS Safety Report 16166139 (Version 4)
Quarter: 2019Q2

REPORT INFORMATION
  Report Type: Report from Study
  Country: US (occurrence: US)
  Receive Date: 20190406
  Receipt Date: 20190502
  Transmission Date: 20190711
  Serious: Yes (Death, Hospitalization, Other)
  Sender: FDA-Public Use
  Company Number: US-BRISTOL-MYERS SQUIBB COMPANY-BMS-2019-032365

PATIENT
  Age: 67 Year
  Sex: Male
  Weight: 60.8 kg

DRUGS (2)
  1. VARLILUMAB [Suspect]
     Active Substance: VARLILUMAB
     Indication: DIFFUSE LARGE B-CELL LYMPHOMA
     Dosage: 175 MILLIGRAM, Q4WK OVER 90 MINUTES ON DAY 1
     Route: 042
     Dates: start: 20190104, end: 20190301
  2. NIVOLUMAB [Suspect]
     Active Substance: NIVOLUMAB
     Indication: DIFFUSE LARGE B-CELL LYMPHOMA
     Dosage: 240 MILLIGRAM, Q4WK OVER 60 MINS ON DAYS 1 AND 15
     Route: 042
     Dates: start: 20190104, end: 20190301

REACTIONS (6)
  - Malignant neoplasm progression [Fatal]
  - Hypotension [Recovered/Resolved]
  - Fall [Recovered/Resolved]
  - Hypertension [Unknown]
  - Vision blurred [Recovered/Resolved]
  - Soft tissue necrosis [Unknown]

NARRATIVE: CASE EVENT DATE: 20190314
